FAERS Safety Report 21247908 (Version 3)
Quarter: 2022Q4

REPORT INFORMATION
  Report Type: Spontaneous
  Country: IN (occurrence: IN)
  Receive Date: 20220824
  Receipt Date: 20221104
  Transmission Date: 20230113
  Serious: Yes (Other)
  Sender: FDA-Public Use
  Company Number: IN-PFIZER INC-202101605929

PATIENT
  Age: 55 Year
  Sex: Female

DRUGS (2)
  1. DACOMITINIB [Suspect]
     Active Substance: DACOMITINIB
     Dosage: 30 MG, 1X/DAY
     Route: 048
     Dates: start: 202111
  2. DOXYCYCLINE [Concomitant]
     Active Substance: DOXYCYCLINE

REACTIONS (17)
  - Carcinoembryonic antigen increased [Unknown]
  - Pulmonary fibrosis [Unknown]
  - Alanine aminotransferase increased [Unknown]
  - Neoplasm progression [Unknown]
  - Dermatitis allergic [Unknown]
  - Rash [Unknown]
  - Paronychia [Unknown]
  - Blood pressure increased [Unknown]
  - C-reactive protein increased [Unknown]
  - Blood alkaline phosphatase decreased [Unknown]
  - Weight decreased [Unknown]
  - Headache [Unknown]
  - Pulmonary mass [Unknown]
  - Haemangioma [Unknown]
  - Osteosclerosis [Unknown]
  - Spinal osteoarthritis [Unknown]
  - Investigation abnormal [Unknown]

NARRATIVE: CASE EVENT DATE: 20211203
